FAERS Safety Report 6721855-1 (Version None)
Quarter: 2010Q2

REPORT INFORMATION
  Report Type: 
  Country: None (occurrence: None)
  Receive Date: 20100512
  Receipt Date: 20100429
  Transmission Date: 20101027
  Serious: Yes (Other)
  Sender: FDA-Public Use
  Company Number: PHHY2010US28232

PATIENT
  Sex: Female
  Weight: 53.4 kg

DRUGS (3)
  1. GLEEVEC [Suspect]
     Indication: CHRONIC MYELOID LEUKAEMIA
     Dosage: 600 MG DAILY
     Route: 048
     Dates: start: 20100122, end: 20100422
  2. GLEEVEC [Suspect]
     Dosage: UNK
     Route: 048
  3. HYDROXYUREA [Concomitant]

REACTIONS (5)
  - GLIOBLASTOMA MULTIFORME [None]
  - NEOPLASM MALIGNANT [None]
  - NERVOUS SYSTEM DISORDER [None]
  - PARTIAL SEIZURES [None]
  - SURGERY [None]
